FAERS Safety Report 13572380 (Version 1)
Quarter: 2017Q2

REPORT INFORMATION
  Report Type: Spontaneous
  Country: US (occurrence: US)
  Receive Date: 20170523
  Receipt Date: 20170523
  Transmission Date: 20170830
  Serious: No
  Sender: FDA-Public Use
  Company Number: US-JNJFOC-20170401552

PATIENT
  Age: 69 Year
  Sex: Female

DRUGS (12)
  1. AMARYL [Concomitant]
     Active Substance: GLIMEPIRIDE
  2. METFORMIN [Concomitant]
     Active Substance: METFORMIN HYDROCHLORIDE
  3. PLAVIX [Concomitant]
     Active Substance: CLOPIDOGREL BISULFATE
  4. COQ10 [Concomitant]
     Active Substance: UBIDECARENONE
  5. LISINOPRIL/HCTZ [Concomitant]
     Active Substance: HYDROCHLOROTHIAZIDE\LISINOPRIL
  6. ZOLOFT [Concomitant]
     Active Substance: SERTRALINE HYDROCHLORIDE
  7. SYNTHROID [Concomitant]
     Active Substance: LEVOTHYROXINE SODIUM
  8. IMBRUVICA [Suspect]
     Active Substance: IBRUTINIB
     Indication: DIFFUSE LARGE B-CELL LYMPHOMA
     Route: 048
     Dates: start: 20141111
  9. AMBIEN [Concomitant]
     Active Substance: ZOLPIDEM TARTRATE
  10. XANAX [Concomitant]
     Active Substance: ALPRAZOLAM
  11. ATORVASTATIN [Concomitant]
     Active Substance: ATORVASTATIN
  12. FISH OIL W/TOCOPHEROL [Concomitant]

REACTIONS (3)
  - Influenza [Recovered/Resolved]
  - Off label use [Not Recovered/Not Resolved]
  - Product use in unapproved indication [Not Recovered/Not Resolved]

NARRATIVE: CASE EVENT DATE: 20141111
